FAERS Safety Report 4335894-1 (Version None)
Quarter: 2004Q2

REPORT INFORMATION
  Report Type: 
  Country: None (occurrence: None)
  Receive Date: 20040406
  Receipt Date: 20040324
  Transmission Date: 20050107
  Serious: Yes (Life-Threatening, Hospitalization, Other)
  Sender: FDA-Public Use
  Company Number: 2003123896

PATIENT
  Age: 56 Year
  Sex: Male
  Weight: 79 kg

DRUGS (6)
  1. VFEND [Suspect]
     Indication: FEBRILE NEUTROPENIA
     Dosage: 400 MG (BID), ORAL
     Route: 048
     Dates: start: 20031016, end: 20031031
  2. VFEND [Suspect]
     Indication: FUNGAL INFECTION
     Dosage: 400 MG (BID), ORAL
     Route: 048
     Dates: start: 20031016, end: 20031031
  3. PIP/TAZO (PIPERACILLIN SODIUM, TAZOBACTAM SODIUM) [Suspect]
     Indication: BACTERIAL INFECTION
     Dosage: 12 GRAM (TID), INTRAVENOUS
     Route: 042
     Dates: start: 20031028, end: 20031031
  4. PIP/TAZO (PIPERACILLIN SODIUM, TAZOBACTAM SODIUM) [Suspect]
     Indication: FEBRILE NEUTROPENIA
     Dosage: 12 GRAM (TID), INTRAVENOUS
     Route: 042
     Dates: start: 20031028, end: 20031031
  5. BACTRIM [Concomitant]
  6. ACYCLOVIR [Concomitant]

REACTIONS (13)
  - ALANINE AMINOTRANSFERASE INCREASED [None]
  - ASPARTATE AMINOTRANSFERASE INCREASED [None]
  - BLOOD ALKALINE PHOSPHATASE INCREASED [None]
  - BLOOD BILIRUBIN INCREASED [None]
  - BLOOD CREATININE INCREASED [None]
  - BLOOD UREA INCREASED [None]
  - EOSINOPHILIA [None]
  - FEBRILE NEUTROPENIA [None]
  - GAMMA-GLUTAMYLTRANSFERASE INCREASED [None]
  - GENERAL PHYSICAL HEALTH DETERIORATION [None]
  - INTERSTITIAL LUNG DISEASE [None]
  - OEDEMA PERIPHERAL [None]
  - SKIN DESQUAMATION [None]
